FAERS Safety Report 11804010 (Version 1)
Quarter: 2015Q4

REPORT INFORMATION
  Report Type: Other
  Country: US (occurrence: US)
  Receive Date: 20151204
  Receipt Date: 20151204
  Transmission Date: 20160305
  Serious: Yes (Other)
  Sender: FDA-Public Use
  Company Number: US-DEP_13151_2015

PATIENT
  Sex: Female

DRUGS (2)
  1. DICLOFENAC POTASSIUM. [Suspect]
     Active Substance: DICLOFENAC POTASSIUM
     Indication: PRODUCT USED FOR UNKNOWN INDICATION
  2. TEGRETOL [Concomitant]
     Active Substance: CARBAMAZEPINE
     Dosage: DF

REACTIONS (4)
  - Pain [Unknown]
  - Cardiac disorder [Unknown]
  - Drug ineffective [Unknown]
  - Lupus-like syndrome [Unknown]
